FAERS Safety Report 7866246-5 (Version None)
Quarter: 2011Q4

REPORT INFORMATION
  Report Type: 
  Country: None (occurrence: None)
  Receive Date: 20111028
  Receipt Date: 20110518
  Transmission Date: 20120403
  Serious: No
  Sender: FDA-Public Use
  Company Number: US-GLAXOSMITHKLINE-A0927823A

PATIENT
  Age: 71 Year
  Sex: Female

DRUGS (13)
  1. ADVAIR DISKUS 100/50 [Suspect]
     Indication: PNEUMONIA
     Dosage: 1PUFF TWICE PER DAY
     Route: 055
     Dates: end: 20110511
  2. CITALOPRAM HYDROBROMIDE [Concomitant]
  3. PLAVIX [Concomitant]
  4. VITAMIN D [Concomitant]
  5. VYTORIN [Concomitant]
  6. BIDIL [Concomitant]
  7. MULTI-VITAMIN [Concomitant]
  8. LOVAZA [Concomitant]
  9. EVISTA [Concomitant]
  10. GLIPIZIDE [Concomitant]
  11. COREG [Concomitant]
  12. FUROSEMIDE [Concomitant]
  13. JANUVIA [Concomitant]

REACTIONS (3)
  - TOOTHACHE [None]
  - SENSITIVITY OF TEETH [None]
  - STOMATITIS [None]
